FAERS Safety Report 5017022-2 (Version None)
Quarter: 2006Q2

REPORT INFORMATION
  Report Type: 
  Country: None (occurrence: None)
  Receive Date: 20060526
  Receipt Date: 20060516
  Transmission Date: 20061013
  Serious: Yes (Death)
  Sender: FDA-Public Use
  Company Number: US200604003592

PATIENT
  Sex: Male

DRUGS (4)
  1. SYMBYAX [Suspect]
     Indication: BIPOLAR DISORDER
     Dosage: D/F
  2. ZOLOFT [Concomitant]
  3. WELLBUTRIN [Concomitant]
  4. SEROQUEL [Concomitant]

REACTIONS (1)
  - COMPLETED SUICIDE [None]
